FAERS Safety Report 5271211-0 (Version None)
Quarter: 2007Q1

REPORT INFORMATION
  Report Type: 
  Country: None (occurrence: None)
  Receive Date: 20070321
  Receipt Date: 20070313
  Transmission Date: 20070707
  Serious: Yes (Hospitalization)
  Sender: FDA-Public Use
  Company Number: FR-MERCK-0701FRA00075

PATIENT
  Age: 50 Year
  Sex: Male
  Weight: 72 kg

DRUGS (4)
  1. SINGULAIR [Suspect]
     Indication: ASTHMA
     Route: 048
     Dates: start: 20030601, end: 20030930
  2. SINGULAIR [Suspect]
     Route: 048
     Dates: start: 20060715, end: 20060915
  3. FLUTICASONE PROPIONATE AND SALMETEROL XINAFOATE [Concomitant]
     Indication: ASTHMA
     Dates: start: 20060701
  4. ALBUTEROL SULFATE [Concomitant]
     Indication: ASTHMA
     Dates: start: 20060701

REACTIONS (1)
  - DERMATOMYOSITIS [None]
